FAERS Safety Report 13503655 (Version 1)
Quarter: 2017Q2

REPORT INFORMATION
  Report Type: Spontaneous
  Country: US (occurrence: US)
  Receive Date: 20170502
  Receipt Date: 20170502
  Transmission Date: 20170830
  Serious: Yes (Other)
  Sender: FDA-Public Use
  Company Number: US-PFIZER INC-2017187631

PATIENT
  Sex: Male
  Weight: 79 kg

DRUGS (3)
  1. NORPACE CR [Suspect]
     Active Substance: DISOPYRAMIDE PHOSPHATE
     Dosage: 300 MG, 2X/DAY (2X150 MG IN THE MORNING AND 2X150 MG IN THE EVENING)
  2. NORPACE CR [Suspect]
     Active Substance: DISOPYRAMIDE PHOSPHATE
     Indication: HEART DISEASE CONGENITAL
     Dosage: 200 MG, 2X/DAY (2X100 IN THE MORNING AND 2X100 MG IN THE EVENING)
     Dates: start: 1983
  3. NORPACE CR [Suspect]
     Active Substance: DISOPYRAMIDE PHOSPHATE
     Dosage: 450 MG, DAILY (2X150 MG IN THE MORNING AND 1X150 MG IN THE EVENING)
     Dates: start: 201605, end: 201703

REACTIONS (2)
  - Intentional product misuse [Unknown]
  - Cardiac flutter [Unknown]

NARRATIVE: CASE EVENT DATE: 201602
